FAERS Safety Report 19460385 (Version 2)
Quarter: 2021Q3

REPORT INFORMATION
  Report Type: Other
  Country: FR (occurrence: FR)
  Receive Date: 20210625
  Receipt Date: 20210805
  Transmission Date: 20211014
  Serious: Yes (Life-Threatening)
  Sender: FDA-Public Use
  Company Number: FR-ROCHE-2855203

PATIENT
  Age: 52 Year
  Sex: Male
  Weight: 58 kg

DRUGS (2)
  1. ALTEPLASE. [Suspect]
     Active Substance: ALTEPLASE
     Indication: FIBRINOLYSIS
  2. ALTEPLASE. [Suspect]
     Active Substance: ALTEPLASE
     Indication: SUBARACHNOID HAEMORRHAGE
     Dosage: #1 1 MILLIGRAM EVERY 8 HOUR(S) TOTAL : 9 MG
     Dates: start: 20210608, end: 20210611

REACTIONS (1)
  - Meningitis staphylococcal [Recovered/Resolved]

NARRATIVE: CASE EVENT DATE: 20210616
